FAERS Safety Report 7389961-9 (Version None)
Quarter: 2011Q2

REPORT INFORMATION
  Report Type: 
  Country: None (occurrence: None)
  Receive Date: 20110401
  Receipt Date: 20110318
  Transmission Date: 20111010
  Serious: Yes (Hospitalization)
  Sender: FDA-Public Use
  Company Number: FR-JNJFOC-20110302164

PATIENT
  Age: 64 Year
  Sex: Male

DRUGS (5)
  1. INFLIXIMAB, RECOMBINANT [Suspect]
     Indication: CROHN'S DISEASE
     Route: 042
  2. INFLIXIMAB, RECOMBINANT [Suspect]
     Route: 042
  3. ADALIMUMAB [Concomitant]
     Indication: CROHN'S DISEASE
  4. INFLIXIMAB, RECOMBINANT [Suspect]
     Route: 042
  5. METHOTREXATE [Concomitant]
     Indication: CROHN'S DISEASE

REACTIONS (4)
  - GASTROINTESTINAL TRACT ADENOMA [None]
  - COLON CANCER [None]
  - DISEASE PROGRESSION [None]
  - CROHN'S DISEASE [None]
